FAERS Safety Report 4911102-5 (Version None)
Quarter: 2006Q1

REPORT INFORMATION
  Report Type: 
  Country: None (occurrence: None)
  Receive Date: 20060209
  Receipt Date: 20060130
  Transmission Date: 20060701
  Serious: Yes (Hospitalization)
  Sender: FDA-Public Use
  Company Number: 2006011322

PATIENT
  Age: 55 Year
  Sex: Male
  Weight: 56 kg

DRUGS (1)
  1. VIAGRA [Suspect]
     Indication: ILL-DEFINED DISORDER
     Dosage: 50 MG AS NECESSARY, ORAL
     Route: 048

REACTIONS (9)
  - ARTERIOSCLEROSIS [None]
  - CEREBRAL INFARCTION [None]
  - DECREASED APPETITE [None]
  - GAIT DISTURBANCE [None]
  - HEMIPARESIS [None]
  - HEMIPLEGIA [None]
  - NUCLEAR MAGNETIC RESONANCE IMAGING BRAIN ABNORMAL [None]
  - SENSORY DISTURBANCE [None]
  - URINARY INCONTINENCE [None]
